FAERS Safety Report 13398345 (Version 1)
Quarter: 2017Q2

REPORT INFORMATION
  Report Type: Spontaneous
  Country: HU (occurrence: HU)
  Receive Date: 20170403
  Receipt Date: 20170403
  Transmission Date: 20170830
  Serious: Yes (Death, Hospitalization, Other)
  Sender: FDA-Public Use
  Company Number: PHHY2017HU048985

PATIENT
  Age: 23 Year
  Sex: Male
  Weight: 72 kg

DRUGS (6)
  1. PREGABALIN. [Suspect]
     Active Substance: PREGABALIN
     Indication: PARTIAL SEIZURES
     Dosage: 150 UNK, BID
     Route: 048
     Dates: start: 20101123, end: 20110103
  2. SERTRALINE [Concomitant]
     Active Substance: SERTRALINE HYDROCHLORIDE
     Indication: DEPRESSION
     Dosage: 50 MG, QD IN THE MORNING
     Route: 065
     Dates: start: 20101005, end: 20110301
  3. PREGABALIN. [Suspect]
     Active Substance: PREGABALIN
     Indication: EPILEPSY
     Dosage: 150 MG, BID
     Route: 048
     Dates: start: 20101116
  4. TEGRETOL [Suspect]
     Active Substance: CARBAMAZEPINE
     Indication: EPILEPSY
     Dosage: 400 MG, BID
     Route: 048
     Dates: start: 20070122, end: 20110103
  5. ETHYL ALCOHOL [Suspect]
     Active Substance: ALCOHOL
     Indication: PRODUCT USED FOR UNKNOWN INDICATION
     Route: 065
  6. KEPPRA [Concomitant]
     Active Substance: LEVETIRACETAM
     Indication: EPILEPSY
     Dosage: 500 MG, BID
     Route: 065
     Dates: start: 20100505

REACTIONS (15)
  - Status epilepticus [Fatal]
  - Oxygen saturation decreased [Unknown]
  - Blood creatine phosphokinase increased [Unknown]
  - Anger [Unknown]
  - Aggression [Unknown]
  - Pyrexia [Unknown]
  - Drug administration error [Unknown]
  - Acute respiratory distress syndrome [Fatal]
  - Coma [Unknown]
  - Pneumonia [Unknown]
  - Pulmonary function test decreased [Unknown]
  - Cardiac arrest [Unknown]
  - Brain injury [Unknown]
  - Seizure [Recovered/Resolved]
  - Haemophilus infection [Unknown]

NARRATIVE: CASE EVENT DATE: 20110104
